FAERS Safety Report 5356264-3 (Version None)
Quarter: 2007Q2

REPORT INFORMATION
  Report Type: 
  Country: None (occurrence: None)
  Receive Date: 20070613
  Receipt Date: 20070604
  Transmission Date: 20071010
  Serious: Yes (Other)
  Sender: FDA-Public Use
  Company Number: AU-PFIZER INC-2007046205

PATIENT
  Sex: Female

DRUGS (1)
  1. ZELDOX (CAPSULES) [Suspect]
     Route: 048

REACTIONS (6)
  - BALANCE DISORDER [None]
  - FLUSHING [None]
  - HALLUCINATION, VISUAL [None]
  - INSOMNIA [None]
  - TREMOR [None]
  - VOMITING [None]
